FAERS Safety Report 21334045 (Version 1)
Quarter: 2022Q3

REPORT INFORMATION
  Report Type: Spontaneous
  Country: US (occurrence: US)
  Receive Date: 20220914
  Receipt Date: 20220914
  Transmission Date: 20221027
  Serious: No
  Sender: FDA-Public Use
  Company Number: US-LANNETT COMPANY, INC.-US-2022LAN000069

PATIENT
  Sex: Female

DRUGS (1)
  1. LACTULOSE [Suspect]
     Active Substance: LACTULOSE
     Indication: Liver disorder
     Dosage: UNK
     Route: 048
     Dates: start: 2018

REACTIONS (2)
  - Nausea [Unknown]
  - Product dose omission issue [Unknown]
